FAERS Safety Report 15618198 (Version 2)
Quarter: 2018Q4

REPORT INFORMATION
  Report Type: Spontaneous
  Country: US (occurrence: US)
  Receive Date: 20181114
  Receipt Date: 20181123
  Transmission Date: 20190205
  Serious: Yes (Other)
  Sender: FDA-Public Use
  Company Number: US-BEH-2018096704

PATIENT
  Sex: Female

DRUGS (1)
  1. HIZENTRA [Suspect]
     Active Substance: HUMAN IMMUNOGLOBULIN G
     Indication: CHRONIC INFLAMMATORY DEMYELINATING POLYRADICULONEUROPATHY
     Dosage: 2 DOSES ONLY
     Route: 058
     Dates: start: 2011, end: 2011

REACTIONS (2)
  - Migraine [Not Recovered/Not Resolved]
  - Meningitis aseptic [Unknown]

NARRATIVE: CASE EVENT DATE: 2011
